FAERS Safety Report 18077982 (Version 1)
Quarter: 2020Q3

REPORT INFORMATION
  Report Type: Spontaneous
  Country: US (occurrence: US)
  Receive Date: 20200727
  Receipt Date: 20200727
  Transmission Date: 20201103
  Serious: No
  Sender: FDA-Public Use
  Company Number: US-SEATTLE GENETICS-2020SGN02100

PATIENT
  Sex: Female

DRUGS (3)
  1. TUKYSA [Suspect]
     Active Substance: TUCATINIB
     Indication: BREAST CANCER FEMALE
     Dosage: UNK
     Dates: start: 202004, end: 20200518
  2. CAPECITABINE. [Suspect]
     Active Substance: CAPECITABINE
     Indication: BREAST CANCER FEMALE
  3. HERCEPTIN [Suspect]
     Active Substance: TRASTUZUMAB
     Indication: BREAST CANCER FEMALE
     Dosage: UNK
     Dates: end: 20200505

REACTIONS (11)
  - Inappropriate schedule of product administration [Unknown]
  - Limb injury [Unknown]
  - Dizziness [Unknown]
  - Emotional disorder [Unknown]
  - Coordination abnormal [Unknown]
  - Fatigue [Unknown]
  - Epistaxis [Unknown]
  - Nausea [Unknown]
  - Illness [Unknown]
  - Drug hypersensitivity [Unknown]
  - Adverse drug reaction [Unknown]
